FAERS Safety Report 6430319-4 (Version None)
Quarter: 2009Q4

REPORT INFORMATION
  Report Type: 
  Country: None (occurrence: None)
  Receive Date: 20091104
  Receipt Date: 20091102
  Transmission Date: 20100525
  Serious: Yes (Death, Hospitalization)
  Sender: FDA-Public Use
  Company Number: 20097564

PATIENT
  Sex: Male

DRUGS (1)
  1. LIORESAL [Suspect]
     Indication: MUSCLE SPASTICITY
     Dosage: 76 MCG, DAILY; INTRATHECAL
     Route: 037

REACTIONS (2)
  - ASPIRATION [None]
  - REFUSAL OF TREATMENT BY RELATIVE [None]
